FAERS Safety Report 6829497-4 (Version None)
Quarter: 2010Q3

REPORT INFORMATION
  Report Type: 
  Country: None (occurrence: None)
  Receive Date: 20100709
  Receipt Date: 20070314
  Transmission Date: 20110219
  Serious: No
  Sender: FDA-Public Use
  Company Number: US-PFIZER INC-2007003300

PATIENT
  Sex: Female
  Weight: 127.01 kg

DRUGS (12)
  1. CHANTIX [Suspect]
     Indication: SMOKING CESSATION THERAPY
     Route: 048
     Dates: start: 20070101
  2. HYDROCHLOROTHIAZIDE [Concomitant]
  3. PROCARDIA [Concomitant]
  4. TOPROL-XL [Concomitant]
  5. COMBIVENT [Concomitant]
  6. ISOSORBIDE DINITRATE [Concomitant]
  7. KLONOPIN [Concomitant]
  8. REMERON [Concomitant]
  9. NOVOLIN [Concomitant]
  10. LESCOL [Concomitant]
  11. PRILOSEC [Concomitant]
  12. ZETIA [Concomitant]

REACTIONS (5)
  - DYSURIA [None]
  - NAUSEA [None]
  - SUPRAPUBIC PAIN [None]
  - URINARY TRACT INFECTION [None]
  - VOMITING [None]
